FAERS Safety Report 4911757-5 (Version None)
Quarter: 2006Q1

REPORT INFORMATION
  Report Type: 
  Country: None (occurrence: None)
  Receive Date: 20060215
  Receipt Date: 20060206
  Transmission Date: 20060701
  Serious: Yes (Other)
  Sender: FDA-Public Use
  Company Number: PHFR2006GB00752

PATIENT
  Age: 61 Year
  Sex: Female
  Weight: 77 kg

DRUGS (4)
  1. TERBINAFINE HCL [Suspect]
     Indication: ONYCHOMYCOSIS
     Dosage: 250MG DAILY
     Route: 048
     Dates: start: 20050316, end: 20050411
  2. ASPIRIN [Concomitant]
     Indication: PROPHYLAXIS
     Dosage: 75MG DAILY
     Route: 048
     Dates: start: 20020101
  3. BENDROFLUMETHIAZIDE [Concomitant]
     Indication: HYPERTENSION
     Dosage: 2.5MG DAILY
     Route: 048
     Dates: start: 19950101
  4. ZANEDIP [Concomitant]
     Indication: HYPERTENSION
     Dosage: 10MG DAILY
     Route: 048
     Dates: start: 20020101

REACTIONS (2)
  - AGEUSIA [None]
  - ANOSMIA [None]
